FAERS Safety Report 13380728 (Version 1)
Quarter: 2017Q1

REPORT INFORMATION
  Report Type: Spontaneous
  Country: US (occurrence: US)
  Receive Date: 20170328
  Receipt Date: 20170328
  Transmission Date: 20170429
  Serious: Yes (Hospitalization)
  Sender: FDA-Public Use
  Company Number: None

PATIENT
  Age: 67 Year
  Sex: Female
  Weight: 120 kg

DRUGS (2)
  1. ZYKADIA [Suspect]
     Active Substance: CERITINIB
     Indication: ANAPLASTIC LYMPHOMA KINASE GENE MUTATION
     Route: 048
     Dates: start: 20160401, end: 20160624
  2. ZYKADIA [Suspect]
     Active Substance: CERITINIB
     Indication: LUNG CANCER METASTATIC
     Route: 048
     Dates: start: 20160401, end: 20160624

REACTIONS (1)
  - Intestinal perforation [None]

NARRATIVE: CASE EVENT DATE: 20160624
